FAERS Safety Report 8099701-6 (Version None)
Quarter: 2012Q1

REPORT INFORMATION
  Report Type: 
  Country: None (occurrence: None)
  Receive Date: 20120129
  Receipt Date: 20111009
  Transmission Date: 20120608
  Serious: No
  Sender: FDA-Public Use
  Company Number: US-ABBOTT-11P-163-0862375-00

PATIENT
  Age: 31 Year
  Sex: Male

DRUGS (2)
  1. MERCAPTOPURINE [Concomitant]
     Indication: PRODUCT USED FOR UNKNOWN INDICATION
  2. HUMIRA [Suspect]
     Indication: CROHN'S DISEASE

REACTIONS (3)
  - MALAISE [None]
  - ABDOMINAL PAIN UPPER [None]
  - DIZZINESS [None]
